FAERS Safety Report 7534656-1 (Version None)
Quarter: 2011Q2

REPORT INFORMATION
  Report Type: 
  Country: None (occurrence: None)
  Receive Date: 20110609
  Receipt Date: 20110318
  Transmission Date: 20111010
  Serious: Yes (Hospitalization, Other)
  Sender: FDA-Public Use
  Company Number: PHHY2010JP52600

PATIENT
  Sex: Male
  Weight: 61 kg

DRUGS (21)
  1. LIPITOR [Concomitant]
     Dosage: 5 MG, UNK
     Route: 048
  2. FAMOTIDINE [Concomitant]
     Dosage: 20 MG, UNK
     Route: 048
  3. NORVASC [Concomitant]
     Dosage: 10 MG, UNK
     Route: 048
  4. OMEPRAZOLE [Concomitant]
     Dosage: 10MG
     Route: 048
     Dates: start: 20101121
  5. SELBEX [Concomitant]
     Dosage: 20 MG, UNK
     Route: 048
  6. LASIX [Concomitant]
     Dosage: 20 MG
     Route: 048
     Dates: start: 20110101
  7. MAGNESIUM OXIDE [Concomitant]
     Dosage: 2 G, UNK
     Route: 048
     Dates: start: 20100527
  8. URSO 250 [Concomitant]
     Indication: PROPHYLAXIS
     Dosage: 50 MG, UNK
     Route: 048
  9. TRICHLORMETHIAZIDE [Concomitant]
     Dosage: UNK
     Route: 048
     Dates: start: 20101004
  10. TICLOPIDINE HCL [Concomitant]
     Dosage: 100 MG, UNK
     Route: 048
  11. ROHYPNOL [Concomitant]
     Dosage: 2 MG, UNK
     Route: 048
  12. AFINITOR [Suspect]
     Dosage: 10 MG, DAILY
     Route: 048
     Dates: start: 20100716
  13. TENORMIN [Concomitant]
     Dosage: 25 MG, UNK
     Route: 048
  14. YOKUKAN-SAN [Concomitant]
     Route: 048
  15. DIOVAN [Suspect]
     Dosage: 80 MG, DAILY
     Route: 048
  16. DIURETICS [Concomitant]
     Route: 048
  17. MAGNESIUM OXIDE [Concomitant]
     Dosage: 2 G, UNK
     Route: 048
     Dates: end: 20101111
  18. AFINITOR [Suspect]
     Indication: METASTATIC RENAL CELL CARCINOMA
     Dosage: 10 MG, DAILY
     Route: 048
     Dates: start: 20100628, end: 20100713
  19. SORAFENIB TOSILATE [Concomitant]
     Indication: METASTATIC RENAL CELL CARCINOMA
     Dosage: 800 MG, UNK
     Route: 048
     Dates: start: 20090702, end: 20100331
  20. ACTOS [Concomitant]
     Dosage: 15 MG, UNK
     Route: 048
  21. ASPIRIN [Concomitant]
     Dosage: 100 MG, UNK
     Route: 048

REACTIONS (14)
  - RENAL IMPAIRMENT [None]
  - INTERSTITIAL LUNG DISEASE [None]
  - BLOOD UREA INCREASED [None]
  - OEDEMA [None]
  - PYREXIA [None]
  - HAEMOGLOBIN DECREASED [None]
  - BLOOD PHOSPHORUS DECREASED [None]
  - BLOOD POTASSIUM DECREASED [None]
  - URINE OUTPUT DECREASED [None]
  - BLOOD CREATININE INCREASED [None]
  - BLOOD CALCIUM DECREASED [None]
  - GLUCOSE TOLERANCE IMPAIRED [None]
  - NEUTROPHIL COUNT DECREASED [None]
  - INFECTION [None]
